FAERS Safety Report 7009465-2 (Version None)
Quarter: 2010Q3

REPORT INFORMATION
  Report Type: 
  Country: None (occurrence: None)
  Receive Date: 20100923
  Receipt Date: 20100916
  Transmission Date: 20110219
  Serious: Yes (Other)
  Sender: FDA-Public Use
  Company Number: US-WYE-H17587710

PATIENT
  Sex: Female
  Weight: 49.03 kg

DRUGS (2)
  1. PREMARIN [Suspect]
     Indication: ARTIFICIAL MENOPAUSE
     Dosage: UNKNOWN DAILY DOSE
     Route: 048
     Dates: start: 19850101, end: 20100701
  2. PREMARIN [Suspect]
     Indication: PRODUCT USED FOR UNKNOWN INDICATION
     Dosage: UNKNOWN
     Route: 067

REACTIONS (5)
  - BACK INJURY [None]
  - CYSTITIS [None]
  - FALL [None]
  - HIP FRACTURE [None]
  - IRRITABLE BOWEL SYNDROME [None]
